FAERS Safety Report 16715954 (Version 4)
Quarter: 2019Q3

REPORT INFORMATION
  Report Type: Spontaneous
  Country: ES (occurrence: ES)
  Receive Date: 20190819
  Receipt Date: 20190913
  Transmission Date: 20191005
  Serious: Yes (Life-Threatening, Hospitalization, Other)
  Sender: FDA-Public Use
  Company Number: ES-MYLANLABS-2019M1076484

PATIENT
  Age: 78 Year
  Sex: Female
  Weight: 63 kg

DRUGS (5)
  1. KISQALI [Suspect]
     Active Substance: RIBOCICLIB
     Indication: BREAST CANCER
     Dosage: UNK (3 WEEKS OF THERAPY, 1 WEEK REST)
     Route: 065
     Dates: start: 201811
  2. L-THYROXINE                        /00068001/ [Concomitant]
     Active Substance: LEVOTHYROXINE
     Indication: PRIMARY HYPOTHYROIDISM
     Dosage: UNK
     Route: 065
  3. KISQALI [Suspect]
     Active Substance: RIBOCICLIB
     Indication: INVASIVE LOBULAR BREAST CARCINOMA
     Dosage: 600 MG, QD (CYCLICALLY 21 DAYS ON / 7 DAYS OFF)
     Route: 065
     Dates: start: 20181120, end: 20190306
  4. LETROZOLE. [Suspect]
     Active Substance: LETROZOLE
     Indication: BREAST CANCER
     Dosage: UNK (3 WEEKS OF THERAPY, 1 WEEK REST)
     Route: 065
     Dates: start: 201811
  5. AMLODIPINE [Concomitant]
     Active Substance: AMLODIPINE BESYLATE
     Indication: PRODUCT USED FOR UNKNOWN INDICATION
     Dosage: UNK

REACTIONS (36)
  - Oral candidiasis [Unknown]
  - Skin haemorrhage [Unknown]
  - Primary hypothyroidism [Unknown]
  - Lymphadenopathy [Unknown]
  - Electrocardiogram abnormal [Unknown]
  - Pancytopenia [Unknown]
  - Back pain [Not Recovered/Not Resolved]
  - Superinfection [Unknown]
  - Staphylococcal bacteraemia [Unknown]
  - Temperature regulation disorder [Unknown]
  - Neutropenia [Unknown]
  - Oesophageal candidiasis [Unknown]
  - Hypokalaemia [Unknown]
  - Rash [Recovering/Resolving]
  - Dermatitis bullous [Unknown]
  - Temperature regulation disorder [Unknown]
  - Vulvovaginal candidiasis [Unknown]
  - Spondylolisthesis [Unknown]
  - Hypertension [Unknown]
  - Dysphagia [Unknown]
  - Stevens-Johnson syndrome [Recovering/Resolving]
  - Anaemia [Unknown]
  - Hypoalbuminaemia [Unknown]
  - Osteoarthritis [Unknown]
  - Malnutrition [Unknown]
  - Lymphopenia [Unknown]
  - Toxic epidermal necrolysis [Recovering/Resolving]
  - Blood lactate dehydrogenase increased [Unknown]
  - Leukopenia [Unknown]
  - Prerenal failure [Recovering/Resolving]
  - Pain [Unknown]
  - Fluid overload [Unknown]
  - Oedema [Unknown]
  - Vitamin D deficiency [Unknown]
  - Psychomotor disadaptation syndrome [Unknown]
  - Erythema multiforme [Unknown]

NARRATIVE: CASE EVENT DATE: 20190208
